FAERS Safety Report 21995520 (Version 1)
Quarter: 2023Q1

REPORT INFORMATION
  Report Type: Spontaneous
  Country: ME (occurrence: None)
  Receive Date: 20230214
  Receipt Date: 20230214
  Transmission Date: 20230418
  Serious: Yes (Other)
  Sender: FDA-Public Use
  Company Number: None

PATIENT
  Age: 7 Year
  Sex: Female
  Weight: 24 kg

DRUGS (1)
  1. SINGULAIR [Suspect]
     Active Substance: MONTELUKAST SODIUM
     Indication: Cough
     Dosage: OTHER QUANTITY : 28 TABLET(S);?FREQUENCY : DAILY;?
     Route: 048
     Dates: start: 20220905, end: 20221102

REACTIONS (7)
  - Aggression [None]
  - Aggression [None]
  - Nightmare [None]
  - Panic attack [None]
  - Anxiety [None]
  - Crying [None]
  - Anger [None]

NARRATIVE: CASE EVENT DATE: 20220912
